FAERS Safety Report 18045138 (Version 3)
Quarter: 2021Q1

REPORT INFORMATION
  Report Type: Spontaneous
  Country: US (occurrence: US)
  Receive Date: 20200720
  Receipt Date: 20210329
  Transmission Date: 20210419
  Serious: Yes (Other)
  Sender: FDA-Public Use
  Company Number: US-PFIZER INC-2020274492

PATIENT
  Age: 59 Year
  Sex: Female
  Weight: 99.79 kg

DRUGS (3)
  1. IBRANCE [Suspect]
     Active Substance: PALBOCICLIB
     Indication: BREAST CANCER STAGE IV
     Dosage: 100 MG, CYCLIC (ONCE DAILY FOR 21 DAYS)
     Route: 048
     Dates: start: 20200701
  2. EXEMESTANE. [Concomitant]
     Active Substance: EXEMESTANE
     Dosage: 25 MG (TAKING IT AROUND 3PM TO 5PM)
     Route: 048
     Dates: start: 202004
  3. ZOMETA [Concomitant]
     Active Substance: ZOLEDRONIC ACID
     Dosage: UNK, 1X/DAY

REACTIONS (7)
  - Insomnia [Unknown]
  - COVID-19 [Unknown]
  - Dysphagia [Unknown]
  - Dysgeusia [Unknown]
  - Irritability [Unknown]
  - Lymphoedema [Unknown]
  - Burning sensation [Unknown]

NARRATIVE: CASE EVENT DATE: 2020
